FAERS Safety Report 8137989-3 (Version None)
Quarter: 2012Q1

REPORT INFORMATION
  Report Type: 
  Country: None (occurrence: None)
  Receive Date: 20120215
  Receipt Date: 20120208
  Transmission Date: 20120608
  Serious: Yes (Other)
  Sender: FDA-Public Use
  Company Number: US-PFIZER INC-2012035600

PATIENT
  Sex: Female

DRUGS (1)
  1. PREMPRO [Suspect]
     Dosage: UNK

REACTIONS (4)
  - WEIGHT INCREASED [None]
  - CARDIAC DISORDER [None]
  - HYPERCHOLESTEROLAEMIA [None]
  - OVARIAN DISORDER [None]
